FAERS Safety Report 7325919-3 (Version None)
Quarter: 2011Q1

REPORT INFORMATION
  Report Type: 
  Country: None (occurrence: None)
  Receive Date: 20110302
  Receipt Date: 20110219
  Transmission Date: 20110831
  Serious: Yes (Life-Threatening)
  Sender: FDA-Public Use
  Company Number: IR-SANOFI-AVENTIS-2011SA004977

PATIENT
  Age: 57 Year
  Sex: Male

DRUGS (6)
  1. DEXAMETHASONE [Concomitant]
     Indication: PREMEDICATION
  2. CIMETIDINE [Concomitant]
     Indication: PREMEDICATION
  3. PROMETHAZINE [Concomitant]
     Indication: PREMEDICATION
  4. ELOXATIN [Suspect]
     Indication: GASTRIC CANCER
     Route: 041
     Dates: start: 20110123, end: 20110123
  5. 5-FU [Concomitant]
     Indication: GASTRIC CANCER
  6. TAXOTERE [Concomitant]
     Indication: GASTRIC CANCER

REACTIONS (1)
  - CARDIAC ARREST [None]
